FAERS Safety Report 9054437 (Version 1)
Quarter: 2013Q1

REPORT INFORMATION
  Report Type: Spontaneous
  Country: US (occurrence: US)
  Receive Date: 20130208
  Receipt Date: 20130208
  Transmission Date: 20140127
  Serious: No
  Sender: FDA-Public Use
  Company Number: US-GLAXOSMITHKLINE-A0968830A

PATIENT
  Age: 27 Year
  Sex: Female

DRUGS (2)
  1. PAROXETINE [Suspect]
     Indication: DEPRESSION
     Dosage: 20MG TWICE PER DAY
     Route: 048
     Dates: start: 2011, end: 20120229
  2. NO CONCURRENT MEDICATION [Concomitant]

REACTIONS (4)
  - Dizziness [Unknown]
  - Somnolence [Unknown]
  - Dizziness [Unknown]
  - Withdrawal syndrome [Unknown]
